FAERS Safety Report 7184117-7 (Version None)
Quarter: 2010Q4

REPORT INFORMATION
  Report Type: 
  Country: None (occurrence: None)
  Receive Date: 20101123
  Receipt Date: 20100825
  Transmission Date: 20110411
  Serious: No
  Sender: FDA-Public Use
  Company Number: 017798

PATIENT
  Sex: Female
  Weight: 68 kg

DRUGS (7)
  1. CIMZIA [Suspect]
     Indication: CROHN'S DISEASE
     Dosage: (TWO SHOTS  MONTHLY SUBCUTANEOUS)
     Route: 058
     Dates: start: 20100501
  2. ZYRTEC [Concomitant]
  3. STRATTERA [Concomitant]
  4. EVISTA /01303201/ [Concomitant]
  5. HYDROCHLOROTHIAZIDE [Concomitant]
  6. BENTYL [Concomitant]
  7. VICODIN [Concomitant]

REACTIONS (2)
  - ABDOMINAL PAIN [None]
  - INFLUENZA LIKE ILLNESS [None]
